FAERS Safety Report 9250610 (Version 1)
Quarter: 2013Q1

REPORT INFORMATION
  Report Type: Spontaneous
  Country: US (occurrence: None)
  Receive Date: 20130305
  Receipt Date: 20130305
  Transmission Date: 20140127
  Serious: Yes (Other)
  Sender: FDA-Public Use
  Company Number: 163-21880-12082401

PATIENT
  Age: 57 Year
  Sex: Female
  Weight: 111.13 kg

DRUGS (11)
  1. REVLIMID [Suspect]
     Indication: PLASMA CELL MYELOMA
     Dosage: 15 MG, 14 IN 14 D, PO
     Route: 048
     Dates: start: 20120425, end: 20120623
  2. DEXAMETHASONE (DEXAMETHASONE) [Concomitant]
  3. VELCADE (BORTEZOMIB) [Concomitant]
  4. AMBIEN (ZOLPIDEM TARTRATE) [Concomitant]
  5. AMLODIPINE (AMLODIPINE) [Concomitant]
  6. ASPIRIN (ACETYLSALICYLIC ACID) [Concomitant]
  7. ESCITALOPRAM (ESCITALOPRAM) [Concomitant]
  8. FUROSEMIDE (FUROSEMIDE) [Concomitant]
  9. OXYCODONE (OXYCODONE) [Concomitant]
  10. POTASSIUM (POTASSIUM) [Concomitant]
  11. VALACYCLOVIR [Concomitant]

REACTIONS (1)
  - Urticaria [None]
